FAERS Safety Report 23818082 (Version 3)
Quarter: 2024Q2

REPORT INFORMATION
  Report Type: Report from Study
  Country: IT (occurrence: IT)
  Receive Date: 20240506
  Receipt Date: 20240517
  Transmission Date: 20240716
  Serious: Yes (Death, Hospitalization, Other)
  Sender: FDA-Public Use
  Company Number: IT-ABBVIE-5725552

PATIENT

DRUGS (4)
  1. AZACITIDINE [Suspect]
     Active Substance: AZACITIDINE
     Indication: Acute myeloid leukaemia
     Dosage: 75 MILLIGRAM/SQ. METER (FOR 7 DAYS EVERY 28 DAYS (CYCLE 2))
     Route: 065
  2. AZACITIDINE [Suspect]
     Active Substance: AZACITIDINE
     Dosage: 75 MILLIGRAM/SQ. METER (FOR 7 DAYS EVERY 28 DAYS (CYCLE 1))
     Route: 065
  3. VENETOCLAX [Suspect]
     Active Substance: VENETOCLAX
     Indication: Acute myeloid leukaemia
     Dosage: 200 MILLIGRAM, ONCE A DAY (SECOND CYCLE)
     Route: 048
  4. VENETOCLAX [Suspect]
     Active Substance: VENETOCLAX
     Dosage: 200 MILLIGRAM, ONCE A DAYMAXIMUM DOSEFIRST CYCLE ()
     Route: 048

REACTIONS (4)
  - Pneumonia [Fatal]
  - COVID-19 [Unknown]
  - Disease progression [Unknown]
  - Drug ineffective [Unknown]
